FAERS Safety Report 5763060-1 (Version None)
Quarter: 2008Q2

REPORT INFORMATION
  Report Type: 
  Country: None (occurrence: None)
  Receive Date: 20080609
  Receipt Date: 20080529
  Transmission Date: 20081010
  Serious: Yes (Other)
  Sender: FDA-Public Use
  Company Number: DE-WYE-H04384408

PATIENT
  Age: 86 Year
  Sex: Female

DRUGS (1)
  1. CORDAREX [Suspect]
     Dosage: UNKNOWN
     Route: 065
     Dates: start: 20080527

REACTIONS (1)
  - PULMONARY OEDEMA [None]
